FAERS Safety Report 25576361 (Version 2)
Quarter: 2025Q3

REPORT INFORMATION
  Report Type: Spontaneous
  Country: US (occurrence: US)
  Receive Date: 20250718
  Receipt Date: 20250718
  Transmission Date: 20251021
  Serious: No
  Sender: SANDOZ
  Company Number: US-SANDOZ-SDZ2025US050773

PATIENT
  Age: 67 Year
  Sex: Female
  Weight: 94.785 kg

DRUGS (2)
  1. ESTRADIOL [Suspect]
     Active Substance: ESTRADIOL
     Dosage: 0.1MG/24H, BIW
     Route: 062
  2. ESTRADIOL [Suspect]
     Active Substance: ESTRADIOL
     Indication: Hormone replacement therapy
     Dosage: 0.1 MG, Q72H
     Route: 062
     Dates: start: 20250605

REACTIONS (2)
  - Hot flush [Recovering/Resolving]
  - Device adhesion issue [Unknown]

NARRATIVE: CASE EVENT DATE: 20250701
